FAERS Safety Report 5397577-9 (Version None)
Quarter: 2007Q3

REPORT INFORMATION
  Report Type: 
  Country: None (occurrence: None)
  Receive Date: 20070726
  Receipt Date: 20070720
  Transmission Date: 20080115
  Serious: Yes (Other)
  Sender: FDA-Public Use
  Company Number: EC-ROCHE-508128

PATIENT
  Age: 25 Year
  Sex: Female
  Weight: 56.8 kg

DRUGS (2)
  1. ROACCUTAN [Suspect]
     Indication: ACNE
     Route: 048
     Dates: start: 20070212, end: 20070628
  2. CONTRACEPTIVE DRUG NOS [Concomitant]

REACTIONS (1)
  - PREGNANCY [None]
